FAERS Safety Report 7672292-7 (Version None)
Quarter: 2011Q3

REPORT INFORMATION
  Report Type: 
  Country: None (occurrence: None)
  Receive Date: 20110809
  Receipt Date: 20110801
  Transmission Date: 20111222
  Serious: Yes (Other)
  Sender: FDA-Public Use
  Company Number: PHHY2011US39041

PATIENT
  Sex: Female
  Weight: 65.76 kg

DRUGS (1)
  1. GILENYA [Suspect]
     Indication: MULTIPLE SCLEROSIS
     Dosage: 0.5 MG, QD
     Route: 048
     Dates: start: 20110505, end: 20110731

REACTIONS (4)
  - BLOOD PRESSURE DECREASED [None]
  - FLUSHING [None]
  - CARDIAC VENTRICULAR DISORDER [None]
  - HEART RATE DECREASED [None]
